FAERS Safety Report 4719240-7 (Version None)
Quarter: 2005Q3

REPORT INFORMATION
  Report Type: 
  Country: None (occurrence: None)
  Receive Date: 20050719
  Receipt Date: 20050706
  Transmission Date: 20060218
  Serious: Yes (Hospitalization)
  Sender: FDA-Public Use
  Company Number: MK200507-0072-1

PATIENT
  Age: 70 Year
  Sex: Male

DRUGS (1)
  1. HEXABRIX [Suspect]
     Indication: SPINAL MYELOGRAM
     Dosage: SINGLE USE, IT
     Route: 037
     Dates: start: 20050613, end: 20050613

REACTIONS (4)
  - ACCIDENTAL EXPOSURE [None]
  - ASTHENIA [None]
  - HYPERHIDROSIS [None]
  - WRONG DRUG ADMINISTERED [None]
